FAERS Safety Report 4955200-9 (Version None)
Quarter: 2006Q1

REPORT INFORMATION
  Report Type: 
  Country: None (occurrence: None)
  Receive Date: 20060328
  Receipt Date: 20060202
  Transmission Date: 20060701
  Serious: Yes (Other)
  Sender: FDA-Public Use
  Company Number: HQWYE643603FEB06

PATIENT
  Sex: Female

DRUGS (6)
  1. ENBREL [Suspect]
     Indication: RHEUMATOID ARTHRITIS
     Dosage: UNKNOWN
     Route: 058
     Dates: start: 20051001, end: 20060101
  2. INDERAL [Concomitant]
  3. LEVOTHYROXINE SODIUM [Concomitant]
  4. METHOTREXATE [Concomitant]
  5. FOLATE SODIUM [Concomitant]
  6. RISEDRONATE [Concomitant]

REACTIONS (1)
  - CARDIAC FAILURE CONGESTIVE [None]
